FAERS Safety Report 7265924-9 (Version None)
Quarter: 2011Q1

REPORT INFORMATION
  Report Type: 
  Country: None (occurrence: None)
  Receive Date: 20110131
  Receipt Date: 20110112
  Transmission Date: 20110831
  Serious: Yes (Other)
  Sender: FDA-Public Use
  Company Number: D0069639A

PATIENT
  Sex: Male

DRUGS (1)
  1. AVANDAMET [Suspect]
     Indication: DIABETES MELLITUS
     Dosage: 1002MG TWICE PER DAY
     Route: 048
     Dates: start: 20090101, end: 20101201

REACTIONS (4)
  - CARDIAC DISORDER [None]
  - PALPITATIONS [None]
  - IRON DEFICIENCY ANAEMIA [None]
  - DYSPNOEA [None]
